FAERS Safety Report 5107725-3 (Version None)
Quarter: 2006Q3

REPORT INFORMATION
  Report Type: 
  Country: None (occurrence: None)
  Receive Date: 20060919
  Receipt Date: 20060814
  Transmission Date: 20061208
  Serious: Yes (Death)
  Sender: FDA-Public Use
  Company Number: 2006UW16141

PATIENT
  Age: 19647 Day
  Sex: Female
  Weight: 81.6 kg

DRUGS (11)
  1. NEXIUM [Suspect]
     Route: 048
     Dates: start: 20060731
  2. DOXYCYCLINE HYCLATE [Interacting]
     Indication: HUMAN EHRLICHIOSIS
     Route: 048
     Dates: start: 20060710, end: 20060802
  3. XOPENEX [Concomitant]
     Route: 055
     Dates: start: 20060505
  4. PREDNISONE [Concomitant]
     Dates: start: 20060505, end: 20060508
  5. PREMPRO [Concomitant]
  6. ANTIBIOTICS [Concomitant]
  7. ADVAIR DISKUS 100/50 [Concomitant]
  8. SINGULAIR [Concomitant]
  9. ALBUTEROL [Concomitant]
  10. ALLEGRA [Concomitant]
  11. PREVACID [Concomitant]

REACTIONS (2)
  - DRUG INTERACTION [None]
  - SUDDEN DEATH [None]
